FAERS Safety Report 14465670 (Version 1)
Quarter: 2018Q1

REPORT INFORMATION
  Report Type: Report from Study
  Country: US (occurrence: US)
  Receive Date: 20180131
  Receipt Date: 20180131
  Transmission Date: 20180509
  Serious: Yes (Hospitalization)
  Sender: FDA-Public Use
  Company Number: US-ROCHE-1905618

PATIENT
  Age: 65 Year
  Sex: Male
  Weight: 89 kg

DRUGS (18)
  1. CYMBALTA [Concomitant]
     Active Substance: DULOXETINE HYDROCHLORIDE
     Route: 048
     Dates: start: 2012
  2. RESTORIL [Concomitant]
     Active Substance: TEMAZEPAM
     Route: 048
     Dates: start: 20170206
  3. ACETAMINOPHEN. [Concomitant]
     Active Substance: ACETAMINOPHEN
     Route: 048
     Dates: start: 20170305
  4. DETROL LA [Concomitant]
     Active Substance: TOLTERODINE TARTRATE
     Route: 048
     Dates: start: 2013
  5. PREDNISONE. [Concomitant]
     Active Substance: PREDNISONE
     Route: 048
     Dates: start: 20170310, end: 20170315
  6. LUPRON [Concomitant]
     Active Substance: LEUPROLIDE ACETATE
     Route: 030
     Dates: start: 201309
  7. ENZALUTAMIDE [Suspect]
     Active Substance: ENZALUTAMIDE
     Indication: HORMONE-REFRACTORY PROSTATE CANCER
     Dosage: 160 MG ADMINISTERED ONCE DAILY, AS PER PROTOCOL. ?THE MOST RECENT DOSE OF ENZALUTAMIDE (160 MG) WAS
     Route: 048
     Dates: start: 20170223
  8. PREDNISONE. [Concomitant]
     Active Substance: PREDNISONE
     Route: 048
     Dates: start: 20170308, end: 20170309
  9. ATIVAN [Concomitant]
     Active Substance: LORAZEPAM
     Route: 065
     Dates: start: 20170308, end: 20170308
  10. ATIVAN [Concomitant]
     Active Substance: LORAZEPAM
     Route: 048
     Dates: start: 20170310
  11. DOCUSATE SODIUM. [Concomitant]
     Active Substance: DOCUSATE SODIUM
     Route: 048
     Dates: start: 201612
  12. ATEZOLIZUMAB. [Suspect]
     Active Substance: ATEZOLIZUMAB
     Indication: HORMONE-REFRACTORY PROSTATE CANCER
     Dosage: THIS WAS ALSO THE MOST RECENT DOSE OF ATEZOLIZUMAB (1200 MG) WAS ADMINISTERED ON 23/FEB/2017 AT 14:0
     Route: 042
     Dates: start: 20170223
  13. CALCIUM CARBONATE. [Concomitant]
     Active Substance: CALCIUM CARBONATE
     Route: 048
     Dates: start: 20160919
  14. VITAMIN D3 [Concomitant]
     Active Substance: CHOLECALCIFEROL
     Route: 048
     Dates: start: 20160919
  15. PREDNISONE. [Concomitant]
     Active Substance: PREDNISONE
     Route: 048
     Dates: start: 20170309, end: 20170310
  16. CHLORPHENIRAMINE MALEATE. [Concomitant]
     Active Substance: CHLORPHENIRAMINE MALEATE
     Route: 048
     Dates: start: 1990
  17. XANAX XR [Concomitant]
     Active Substance: ALPRAZOLAM
     Route: 048
     Dates: start: 20170206, end: 20170310
  18. XGEVA [Concomitant]
     Active Substance: DENOSUMAB
     Route: 048
     Dates: start: 20160926

REACTIONS (1)
  - Anxiety [Not Recovered/Not Resolved]

NARRATIVE: CASE EVENT DATE: 20170310
